FAERS Safety Report 8558613 (Version 4)
Quarter: 2013Q4

REPORT INFORMATION
  Report Type: Spontaneous
  Country: IT (occurrence: IT)
  Receive Date: 20120511
  Receipt Date: 20131219
  Transmission Date: 20140711
  Serious: Yes (Other)
  Sender: FDA-Public Use
  Company Number: IT-ROCHE-1065627

PATIENT
  Age: 54 Year
  Sex: Female

DRUGS (5)
  1. AVASTIN [Suspect]
     Indication: PRODUCT USED FOR UNKNOWN INDICATION
     Route: 065
     Dates: start: 20090122, end: 20090205
  2. IRINOTECAN [Concomitant]
     Route: 042
     Dates: start: 20090120, end: 20090203
  3. FOLINIC ACID [Concomitant]
     Route: 065
     Dates: start: 20090120, end: 20090203
  4. 5-FU [Concomitant]
     Route: 040
     Dates: start: 20090120, end: 20090203
  5. 5-FU [Concomitant]
     Route: 041
     Dates: start: 20090120, end: 20090203

REACTIONS (2)
  - Alanine aminotransferase increased [Unknown]
  - Aspartate aminotransferase increased [Unknown]
